FAERS Safety Report 10167079 (Version 2)
Quarter: 2014Q2

REPORT INFORMATION
  Report Type: Other
  Country: US (occurrence: US)
  Receive Date: 20140512
  Receipt Date: 20140512
  Transmission Date: 20141212
  Serious: No
  Sender: FDA-Public Use
  Company Number: US-ENDO PHARMACEUTICALS INC.-TRIP20120026

PATIENT
  Sex: Female
  Weight: 96.34 kg

DRUGS (6)
  1. TRI-PREVIFEM TABLETS [Suspect]
     Indication: CONTRACEPTION
     Dosage: UNK
     Route: 048
     Dates: end: 2011
  2. TRI-PREVIFEM TABLETS [Suspect]
     Dosage: UNK
     Route: 048
  3. ALBUTEROL [Concomitant]
     Indication: ASTHMA
     Route: 048
  4. BENADRYL [Concomitant]
     Indication: SEASONAL ALLERGY
     Dosage: 25MG
     Route: 048
  5. PRENATAL MULTIVITAMIN [Concomitant]
     Indication: PRODUCT USED FOR UNKNOWN INDICATION
     Dosage: UNK
     Route: 048
  6. SERTRALINE [Concomitant]
     Indication: PRODUCT USED FOR UNKNOWN INDICATION
     Route: 048

REACTIONS (7)
  - Postpartum depression [Unknown]
  - Pregnancy on oral contraceptive [Recovered/Resolved]
  - Drug ineffective [Recovered/Resolved]
  - Depression [Unknown]
  - Migraine without aura [Unknown]
  - Weight increased [Unknown]
  - Insomnia [Unknown]
